FAERS Safety Report 15160781 (Version 2)
Quarter: 2018Q3

REPORT INFORMATION
  Report Type: Spontaneous
  Country: US (occurrence: US)
  Receive Date: 20180718
  Receipt Date: 20180831
  Transmission Date: 20181010
  Serious: No
  Sender: FDA-Public Use
  Company Number: US-BIOGEN-2017BI00392175

PATIENT
  Sex: Female

DRUGS (4)
  1. AMPYRA [Concomitant]
     Active Substance: DALFAMPRIDINE
     Route: 065
  2. AVONEX [Suspect]
     Active Substance: INTERFERON BETA-1A
     Indication: MULTIPLE SCLEROSIS
     Route: 030
     Dates: start: 20000310, end: 20180618
  3. AMPYRA [Concomitant]
     Active Substance: DALFAMPRIDINE
     Indication: GAIT DISTURBANCE
     Route: 065
  4. EXTAVIA [Suspect]
     Active Substance: INTERFERON BETA-1B
     Indication: PRODUCT USED FOR UNKNOWN INDICATION
     Route: 065

REACTIONS (1)
  - Gait disturbance [Not Recovered/Not Resolved]
